FAERS Safety Report 9525300 (Version 1)
Quarter: 2013Q1

REPORT INFORMATION
  Report Type: Spontaneous
  Country: US (occurrence: None)
  Receive Date: 20130305
  Receipt Date: 20130305
  Transmission Date: 20140127
  Serious: Yes (Hospitalization)
  Sender: FDA-Public Use
  Company Number: 163-21880-12022995

PATIENT
  Age: 71 Year
  Sex: Male

DRUGS (7)
  1. REVLIMID [Suspect]
     Indication: PLASMA CELL MYELOMA
     Dosage: 10 MG, DAILY X D1-21 EVERY 4 WEEKS, PO
     Route: 048
     Dates: start: 20100820
  2. DECADRON (DEXAMETHASONE) [Concomitant]
  3. ZOMETA (ZOLEDRONIC ACID) [Concomitant]
  4. OXYCODONE (OXYCODONE) [Concomitant]
  5. ASA (ACETYLSALICYLIC ACID) [Concomitant]
  6. ZYPREXA (OLANZAPINE) [Concomitant]
  7. TRAZODONE (TRAZODONE) [Concomitant]

REACTIONS (3)
  - Pneumonia [None]
  - Pyrexia [None]
  - Anaemia [None]
